FAERS Safety Report 21629328 (Version 4)
Quarter: 2023Q2

REPORT INFORMATION
  Report Type: Report from Study
  Country: US (occurrence: US)
  Receive Date: 20221122
  Receipt Date: 20230512
  Transmission Date: 20230722
  Serious: Yes (Hospitalization, Other)
  Sender: FDA-Public Use
  Company Number: US-ABBVIE-4209174

PATIENT
  Sex: Male

DRUGS (2)
  1. DUOPA [Suspect]
     Active Substance: CARBIDOPA\LEVODOPA
     Indication: Parkinson^s disease
     Dosage: MORNING DOSE 13ML (20 HOUR LOCKOUT), CONTINUOUS DOSE 4.6ML (COULD GO UP TO 5ML), EXTRA DOSE 2.5ML
     Route: 050
     Dates: start: 20180504
  2. DUOPA [Suspect]
     Active Substance: CARBIDOPA\LEVODOPA
     Dosage: 4.63-20 MG (100ML INTO 7)
     Route: 050
     Dates: start: 202202

REACTIONS (18)
  - Cardiac disorder [Unknown]
  - Pain in extremity [Unknown]
  - Surgery [Unknown]
  - Cognitive disorder [Unknown]
  - Bacteraemia [Unknown]
  - Dysphonia [Unknown]
  - Pneumonia [Unknown]
  - Illness [Not Recovered/Not Resolved]
  - Device issue [Not Recovered/Not Resolved]
  - Rehabilitation therapy [Unknown]
  - Diplopia [Unknown]
  - Muscular weakness [Unknown]
  - Dyspnoea [Unknown]
  - Respiratory tract infection [Unknown]
  - Scab [Unknown]
  - On and off phenomenon [Unknown]
  - Cerebrovascular accident [Unknown]
  - Infection [Unknown]
